FAERS Safety Report 5913561-8 (Version None)
Quarter: 2008Q4

REPORT INFORMATION
  Report Type: 
  Country: None (occurrence: None)
  Receive Date: 20081009
  Receipt Date: 20080930
  Transmission Date: 20090506
  Serious: Yes (Death)
  Sender: FDA-Public Use
  Company Number: JP-ABBOTT-08P-087-0480523-00

PATIENT
  Age: 77 Year
  Sex: Male

DRUGS (6)
  1. LEUPROLIDE ACETATE [Suspect]
     Indication: PROSTATE CANCER STAGE III
     Route: 058
     Dates: start: 20071018, end: 20080403
  2. CHLORMADINONE ACETATE TAB [Concomitant]
     Indication: PROSTATE CANCER STAGE III
     Dates: start: 20070712, end: 20080427
  3. AMLODIPINE BESYLATE [Concomitant]
     Indication: HYPERTENSION
     Route: 048
     Dates: end: 20080427
  4. TAMSULOSIN HCL [Concomitant]
     Indication: BENIGN PROSTATIC HYPERPLASIA
     Route: 048
     Dates: end: 20080427
  5. DIMEMORFAN PHOSPHATE [Concomitant]
     Indication: LUNG NEOPLASM MALIGNANT
     Route: 048
     Dates: end: 20080427
  6. THEOPHYLLINE [Concomitant]
     Indication: LUNG NEOPLASM MALIGNANT
     Route: 048
     Dates: end: 20080427

REACTIONS (1)
  - LUNG NEOPLASM MALIGNANT [None]
